FAERS Safety Report 22181581 (Version 5)
Quarter: 2023Q2

REPORT INFORMATION
  Report Type: Spontaneous
  Country: UY (occurrence: UY)
  Receive Date: 20230406
  Receipt Date: 20230524
  Transmission Date: 20230722
  Serious: No
  Sender: FDA-Public Use
  Company Number: UY-PFIZER INC-PV202300057031

PATIENT
  Age: 13 Year
  Sex: Male
  Weight: 55 kg

DRUGS (2)
  1. GENOTROPIN [Suspect]
     Active Substance: SOMATROPIN
     Indication: Short stature
     Dosage: 1.5 TO 2 MG, 7 TIMES PER WEEK
     Dates: start: 20211126
  2. GENOTROPIN [Suspect]
     Active Substance: SOMATROPIN
     Dosage: 1.9MG 7 TIMES PER WEEK

REACTIONS (3)
  - Injection site pain [Not Recovered/Not Resolved]
  - Needle issue [Not Recovered/Not Resolved]
  - Injection site haemorrhage [Unknown]
